FAERS Safety Report 11137496 (Version 2)
Quarter: 2019Q4

REPORT INFORMATION
  Report Type: Report from Study
  Country: US (occurrence: US)
  Receive Date: 20150526
  Receipt Date: 20191118
  Transmission Date: 20200122
  Serious: Yes (Disabling, Other)
  Sender: FDA-Public Use
  Company Number: US-SA-2014SA036291

PATIENT
  Age: 59 Year
  Sex: Male

DRUGS (2)
  1. REBIF [Concomitant]
     Active Substance: INTERFERON BETA-1A
     Dosage: UNK
     Dates: start: 20120101, end: 20130920
  2. TERIFLUNOMIDE. [Suspect]
     Active Substance: TERIFLUNOMIDE
     Indication: MULTIPLE SCLEROSIS
     Dosage: 14 MG,QD
     Route: 048
     Dates: start: 20131001

REACTIONS (6)
  - Disability [Not Recovered/Not Resolved]
  - Feeling abnormal [Unknown]
  - Automatic bladder [Not Recovered/Not Resolved]
  - Waist circumference increased [Unknown]
  - Unevaluable event [Unknown]
  - Restless legs syndrome [Unknown]
